FAERS Safety Report 8426666-7 (Version None)
Quarter: 2012Q2

REPORT INFORMATION
  Report Type: 
  Country: None (occurrence: None)
  Receive Date: 20120611
  Receipt Date: 20120606
  Transmission Date: 20120825
  Serious: Yes (Hospitalization, Other)
  Sender: FDA-Public Use
  Company Number: TR-BAYER-2012-056732

PATIENT
  Age: 72 Year
  Sex: Male

DRUGS (4)
  1. CIPROFLOXACIN HCL [Suspect]
     Indication: PROSTATIC SPECIFIC ANTIGEN INCREASED
  2. CEFTRIAXONE [Concomitant]
     Dosage: 1 G, BID
  3. CEFUROXIME [Concomitant]
     Dosage: 500 MG, BID
  4. CIPROFLOXACIN HCL [Suspect]
     Indication: PROSTATITIS ESCHERICHIA COLI
     Dosage: 500 MG, BID
     Route: 048

REACTIONS (3)
  - DRUG RESISTANCE [None]
  - RENAL FAILURE ACUTE [None]
  - PROSTATITIS [None]
